FAERS Safety Report 6124302-6 (Version None)
Quarter: 2009Q1

REPORT INFORMATION
  Report Type: 
  Country: None (occurrence: None)
  Receive Date: 20090317
  Receipt Date: 20090306
  Transmission Date: 20090719
  Serious: Yes (Hospitalization, Other)
  Sender: FDA-Public Use
  Company Number: 2009AP000945

PATIENT
  Sex: Male

DRUGS (1)
  1. DILTZAC [Suspect]
     Indication: ATRIAL FIBRILLATION
     Dosage: 180 MG; QD; PO, 120 MG; QD; PO, 180 MG; QD; PO, 240 MG; QD; PO, 360 MG; QD; PO
     Route: 048
     Dates: start: 20080901

REACTIONS (4)
  - ANURIA [None]
  - DIARRHOEA [None]
  - HYPOAESTHESIA [None]
  - VOMITING [None]
